FAERS Safety Report 7907092-3 (Version None)
Quarter: 2011Q4

REPORT INFORMATION
  Report Type: 
  Country: None (occurrence: None)
  Receive Date: 20111110
  Receipt Date: 20110901
  Transmission Date: 20120403
  Serious: No
  Sender: FDA-Public Use
  Company Number: US-ASTRAZENECA-2010SE49388

PATIENT

DRUGS (21)
  1. HYDROCHLOROTHIAZIDE [Concomitant]
     Indication: BLOOD PRESSURE ABNORMAL
     Route: 048
  2. OCUVITE LUTEIN [Concomitant]
     Dosage: ONE TWICE DAILY
     Route: 048
  3. ACETAMINOPHEN [Concomitant]
     Indication: ARTHRITIS
     Dates: end: 20110727
  4. METOPROLOL [Concomitant]
  5. XANAX [Concomitant]
     Indication: ANXIETY
     Dosage: 0.5 TO ONE (0.125 MG) EVERY BEDTIME AS NEEDED
     Route: 048
  6. ASPIRIN [Concomitant]
     Route: 048
  7. VITAMIN D [Concomitant]
     Dosage: ONE DAILY
     Route: 048
  8. PRILOSEC [Concomitant]
     Route: 048
  9. COREG [Concomitant]
     Route: 048
  10. AMITRIPTYLINE HCL [Concomitant]
     Indication: PAIN
     Dosage: ONE TO TWO TAB EVERY DAY AT BEDTIME
     Route: 048
  11. AMITRIPTYLINE HCL [Concomitant]
     Route: 048
  12. CALCIUM PLUS D [Concomitant]
     Dosage: 600 MG 200 ONE PO BID
     Route: 048
  13. ARIMIDEX [Concomitant]
  14. PRAVACHOL [Concomitant]
     Route: 048
  15. LOVAZA [Concomitant]
     Dosage: ONE TWICE DAILY
     Route: 048
  16. METFORMIN HCL [Concomitant]
     Route: 048
  17. DARVOCET-N 50 [Concomitant]
     Indication: PAIN
     Dosage: 100/650 MG ONE TWICE DAILY AS NEEDED
     Route: 048
  18. ZESTRIL [Suspect]
     Route: 048
  19. AMITRIPTYLINE HCL [Concomitant]
     Indication: INSOMNIA
     Dosage: ONE TO TWO TAB EVERY DAY AT BEDTIME
     Route: 048
  20. AMITRIPTYLINE HCL [Concomitant]
     Route: 048
  21. DICLOFENAC SODIUM [Concomitant]
     Indication: COSTOCHONDRITIS
     Dosage: APPLY 2 G FOUR TIMES EVERY DAY
     Route: 061

REACTIONS (2)
  - DRUG HYPERSENSITIVITY [None]
  - ABDOMINAL PAIN UPPER [None]
